FAERS Safety Report 5305011-X (Version None)
Quarter: 2007Q2

REPORT INFORMATION
  Report Type: 
  Country: None (occurrence: None)
  Receive Date: 20070416
  Receipt Date: 20070328
  Transmission Date: 20071010
  Serious: Yes (Death, Hospitalization, Other)
  Sender: FDA-Public Use
  Company Number: 070330-0000368

PATIENT
  Age: 3 Day
  Sex: Male

DRUGS (4)
  1. NEOPROFEN [Suspect]
     Indication: PATENT DUCTUS ARTERIOSUS
     Dosage: 10 MG/KG; 1X; IV
     Route: 042
     Dates: start: 20070323, end: 20070323
  2. SURVANTA [Concomitant]
  3. CAFFEINE [Concomitant]
  4. RED BLOOD CELLS [Concomitant]

REACTIONS (4)
  - ANAEMIA NEONATAL [None]
  - GASTROINTESTINAL DISORDER [None]
  - INTRAVENTRICULAR HAEMORRHAGE NEONATAL [None]
  - NEONATAL DISORDER [None]
